FAERS Safety Report 22526360 (Version 1)
Quarter: 2023Q2

REPORT INFORMATION
  Report Type: Spontaneous
  Country: US (occurrence: None)
  Receive Date: 20230606
  Receipt Date: 20230606
  Transmission Date: 20230722
  Serious: No
  Sender: FDA-Public Use
  Company Number: 2023A129800

PATIENT

DRUGS (1)
  1. BYDUREON BCISE [Suspect]
     Active Substance: EXENATIDE
     Route: 055

REACTIONS (4)
  - Injection site discharge [Unknown]
  - Hypoacusis [Unknown]
  - Injection site haemorrhage [Unknown]
  - Device malfunction [Unknown]
